FAERS Safety Report 4751142-2 (Version None)
Quarter: 2005Q3

REPORT INFORMATION
  Report Type: 
  Country: None (occurrence: None)
  Receive Date: 20050822
  Receipt Date: 20050812
  Transmission Date: 20060218
  Serious: Yes (Other)
  Sender: FDA-Public Use
  Company Number: 2005-07-0092

PATIENT
  Age: 16 Year
  Sex: Male
  Weight: 125.1928 kg

DRUGS (5)
  1. CLARITIN-D [Suspect]
     Indication: PRURITUS
     Dosage: 1 DOSE ORAL
     Route: 048
     Dates: start: 20050625, end: 20050625
  2. CLARITIN-D [Suspect]
     Indication: SWELLING FACE
     Dosage: 1 DOSE ORAL
     Route: 048
     Dates: start: 20050625, end: 20050625
  3. CLARINEX [Suspect]
     Indication: MULTIPLE ALLERGIES
     Dosage: 5MG PO QD ORAL - SEE IMAGE
     Route: 048
     Dates: start: 20050425, end: 20050624
  4. CLARINEX [Suspect]
     Indication: MULTIPLE ALLERGIES
     Dosage: 5MG PO QD ORAL - SEE IMAGE
     Route: 048
     Dates: start: 20050625, end: 20050625
  5. CLARINEX [Suspect]
     Indication: MULTIPLE ALLERGIES
     Dosage: 5MG PO QD ORAL - SEE IMAGE
     Route: 048
     Dates: start: 20050626, end: 20050626

REACTIONS (6)
  - AGITATION [None]
  - AMNESIA [None]
  - LEGAL PROBLEM [None]
  - MEMORY IMPAIRMENT [None]
  - PHYSICAL ASSAULT [None]
  - PSYCHOTIC DISORDER [None]
